FAERS Safety Report 8536707-4 (Version None)
Quarter: 2012Q3

REPORT INFORMATION
  Report Type: 
  Country: None (occurrence: None)
  Receive Date: 20120725
  Receipt Date: 20120716
  Transmission Date: 20120928
  Serious: Yes (Hospitalization)
  Sender: FDA-Public Use
  Company Number: BR-ASTRAZENECA-2012SE50258

PATIENT
  Age: 53 Year
  Sex: Female

DRUGS (1)
  1. ATACAND HCT [Suspect]
     Indication: HYPERTENSION
     Dosage: 16/12.5 MG, OD
     Route: 048
     Dates: start: 20090101, end: 20090101

REACTIONS (1)
  - RENAL CYST [None]
